FAERS Safety Report 5954893-7 (Version None)
Quarter: 2008Q4

REPORT INFORMATION
  Report Type: 
  Country: None (occurrence: None)
  Receive Date: 20081117
  Receipt Date: 20081113
  Transmission Date: 20090506
  Serious: Yes (Death)
  Sender: FDA-Public Use
  Company Number: FR-NOVOPROD-281377

PATIENT
  Age: 69 Year
  Sex: Male
  Weight: 97 kg

DRUGS (6)
  1. NORDITROPIN [Suspect]
     Indication: GROWTH HORMONE DEFICIENCY
     Dosage: .2 MG, QD
     Route: 058
     Dates: start: 20040705
  2. HYDROCORTISONE [Concomitant]
     Indication: BLOOD CORTICOTROPHIN ABNORMAL
     Dosage: 20 MG, QD
     Route: 048
     Dates: start: 19960810
  3. LEVOTHYROX [Concomitant]
     Dosage: 100 UG, QD
     Route: 048
     Dates: start: 19960810
  4. HYTACAND [Concomitant]
     Indication: HYPERTENSION
     Dosage: 16 MG, QD
     Route: 048
     Dates: start: 20040705
  5. AMLOD [Concomitant]
     Indication: HYPERTENSION
     Dosage: 5 MG, QD
     Route: 048
     Dates: start: 20060621
  6. XATRAL                             /00975301/ [Concomitant]
     Dosage: 10 MG, QD
     Route: 048
     Dates: start: 20070101

REACTIONS (1)
  - DEATH [None]
